FAERS Safety Report 9505807 (Version 1)
Quarter: 2013Q1

REPORT INFORMATION
  Report Type: Spontaneous
  Country: US (occurrence: None)
  Receive Date: 20130219
  Receipt Date: 20130219
  Transmission Date: 20140127
  Serious: Yes (Life-Threatening)
  Sender: FDA-Public Use
  Company Number: 1208USA000177

PATIENT
  Age: 77 Year
  Sex: Male

DRUGS (2)
  1. ZOSTAVAX [Suspect]
     Dosage: , SUBCUTANEOUS
     Route: 058
     Dates: start: 20120610, end: 20120610
  2. ZOCOR [Suspect]
     Dosage: 40 MG, UNK, ORAL
     Route: 048
     Dates: start: 2009, end: 20120614

REACTIONS (3)
  - Drug interaction [None]
  - Adverse event [None]
  - Thrombocytopenia [None]
